FAERS Safety Report 5125593-0 (Version None)
Quarter: 2006Q4

REPORT INFORMATION
  Report Type: 
  Country: None (occurrence: None)
  Receive Date: 20061012
  Receipt Date: 20060929
  Transmission Date: 20070319
  Serious: Yes (Other)
  Sender: FDA-Public Use
  Company Number: PHNU2006DE03292

PATIENT
  Sex: Female

DRUGS (2)
  1. AREDIA [Suspect]
     Indication: MULTIPLE MYELOMA
     Dates: start: 19971101, end: 20040801
  2. ZOMETA [Suspect]
     Indication: MULTIPLE MYELOMA
     Dates: start: 20020821, end: 20040801

REACTIONS (5)
  - IMPAIRED HEALING [None]
  - JAW DISORDER [None]
  - JAW OPERATION [None]
  - STEM CELL TRANSPLANT [None]
  - TOOTH EXTRACTION [None]
